FAERS Safety Report 10017511 (Version 1)
Quarter: 2014Q1

REPORT INFORMATION
  Report Type: Spontaneous
  Country: US (occurrence: US)
  Receive Date: 20140318
  Receipt Date: 20140318
  Transmission Date: 20141002
  Serious: No
  Sender: FDA-Public Use
  Company Number: US-BAYER-2014-040101

PATIENT
  Age: 77 Year
  Sex: Male
  Weight: 72.56 kg

DRUGS (1)
  1. ALEVE TABLET [Suspect]
     Indication: PAIN IN EXTREMITY
     Dosage: 2 DF, PRN
     Route: 048
     Dates: start: 201402

REACTIONS (1)
  - Drug ineffective [None]
